FAERS Safety Report 16022539 (Version 1)
Quarter: 2019Q1

REPORT INFORMATION
  Report Type: Spontaneous
  Country: US (occurrence: US)
  Receive Date: 20190301
  Receipt Date: 20190301
  Transmission Date: 20190418
  Serious: No
  Sender: FDA-Public Use
  Company Number: US-GLAXOSMITHKLINE-US2019GSK034837

PATIENT
  Sex: Male
  Weight: 108 kg

DRUGS (2)
  1. NICOTINE UNKNOWN BRAND MEDICATED CHEWING-GUM [Suspect]
     Active Substance: NICOTINE
     Indication: SMOKING CESSATION THERAPY
  2. NICODERM CQ [Suspect]
     Active Substance: NICOTINE
     Indication: SMOKING CESSATION THERAPY

REACTIONS (2)
  - Dizziness [Unknown]
  - Drug ineffective [Unknown]
